FAERS Safety Report 8848041 (Version 3)
Quarter: 2013Q1

REPORT INFORMATION
  Report Type: Spontaneous
  Country: JP (occurrence: JP)
  Receive Date: 20121018
  Receipt Date: 20130109
  Transmission Date: 20140127
  Serious: Yes (Death)
  Sender: FDA-Public Use
  Company Number: JP-ELI_LILLY_AND_COMPANY-JP201210004835

PATIENT
  Age: 73 Year
  Sex: Female

DRUGS (7)
  1. ALIMTA [Suspect]
     Indication: LUNG ADENOCARCINOMA RECURRENT
     Dosage: 710 MG, OTHER
     Route: 042
     Dates: start: 20121010, end: 20121010
  2. CARBOPLATIN [Concomitant]
     Indication: LUNG ADENOCARCINOMA RECURRENT
     Dosage: 345 MG, OTHER
     Route: 042
     Dates: start: 20121010, end: 20121010
  3. GRANISETRON [Concomitant]
     Indication: PROPHYLAXIS
     Dosage: 3 MG, QD
     Dates: start: 20121010, end: 20121010
  4. DECADRON                                /CAN/ [Concomitant]
     Indication: PROPHYLAXIS
     Dosage: 6.6 MG, QD
     Route: 042
     Dates: start: 20121010, end: 20121010
  5. ISOTONIC SODIUM CHLORIDE SOLUTION [Concomitant]
     Indication: PROPHYLAXIS
     Dosage: 100 ML, QD
     Route: 042
     Dates: start: 20121010, end: 20121010
  6. METHYCOBAL [Concomitant]
     Indication: PROPHYLAXIS
     Dosage: 500 UG, UNK
     Dates: start: 20120914
  7. PANVITAN [Concomitant]
     Indication: PROPHYLAXIS
     Dosage: 1 G, UNK
     Route: 048
     Dates: start: 20120914

REACTIONS (1)
  - Mesenteric artery thrombosis [Fatal]
